FAERS Safety Report 25543777 (Version 1)
Quarter: 2025Q3

REPORT INFORMATION
  Report Type: Spontaneous
  Country: US (occurrence: US)
  Receive Date: 20250711
  Receipt Date: 20250711
  Transmission Date: 20251021
  Serious: No
  Sender: DR REDDYS
  Company Number: None

PATIENT
  Sex: Female

DRUGS (3)
  1. LURASIDONE [Suspect]
     Active Substance: LURASIDONE
     Indication: Schizophrenia
  2. OLANZAPINE [Suspect]
     Active Substance: OLANZAPINE
     Indication: Schizophrenia
     Dosage: 20 MG NIGHTLY
     Route: 048
  3. DIVALPROEX SODIUM [Suspect]
     Active Substance: DIVALPROEX SODIUM
     Indication: Schizophrenia

REACTIONS (3)
  - Sedation [Unknown]
  - Metabolic disorder [Unknown]
  - Cardiac disorder [Unknown]
